FAERS Safety Report 25472565 (Version 1)
Quarter: 2025Q2

REPORT INFORMATION
  Report Type: Spontaneous
  Country: US (occurrence: US)
  Receive Date: 20250624
  Receipt Date: 20250624
  Transmission Date: 20250716
  Serious: No
  Sender: MYLAN
  Company Number: US-MYLANLABS-2025M1050631

PATIENT
  Sex: Male
  Weight: 65.77 kg

DRUGS (3)
  1. FENTANYL TRANSDERMAL SYSTEM [Suspect]
     Active Substance: FENTANYL
     Indication: Product used for unknown indication
     Dosage: 12 MICROGRAM, QH (PER HOUR)
     Dates: start: 202506
  2. PREDNISONE [Concomitant]
     Active Substance: PREDNISONE
  3. INFLIXIMAB [Concomitant]
     Active Substance: INFLIXIMAB
     Indication: Immune system disorder

REACTIONS (3)
  - Wrong technique in product usage process [Unknown]
  - Product use complaint [Unknown]
  - Product adhesion issue [Unknown]
